FAERS Safety Report 4476905-2 (Version None)
Quarter: 2004Q4

REPORT INFORMATION
  Report Type: 
  Country: None (occurrence: None)
  Receive Date: 20041013
  Receipt Date: 20040927
  Transmission Date: 20050328
  Serious: Yes (Death, Life-Threatening, Hospitalization, Other)
  Sender: FDA-Public Use
  Company Number: US_020181176

PATIENT
  Age: 60 Year
  Sex: Male
  Weight: 76 kg

DRUGS (7)
  1. GEMZAR [Suspect]
     Indication: PANCREATIC CARCINOMA
     Dosage: 1800 MG/OTHER
     Dates: start: 20011015, end: 20020110
  2. ZOFRAN [Concomitant]
  3. FIRSTCIN (CEFOZOPRAN HYDROCHLORIDE) [Concomitant]
  4. LASIX [Concomitant]
  5. ALBUMIN (HUMAN) [Concomitant]
  6. MS CONTIN [Concomitant]
  7. AMOBAN (ZOPICLONE) [Concomitant]

REACTIONS (11)
  - ASCITES [None]
  - BLADDER CANCER [None]
  - HAEMATOCRIT DECREASED [None]
  - HAEMATURIA [None]
  - HAEMOGLOBIN DECREASED [None]
  - MALIGNANT NEOPLASM PROGRESSION [None]
  - OEDEMA [None]
  - PANCREATIC CARCINOMA STAGE IV [None]
  - RED BLOOD CELL COUNT DECREASED [None]
  - RENAL IMPAIRMENT [None]
  - VOLUME BLOOD DECREASED [None]
